FAERS Safety Report 5876031-1 (Version None)
Quarter: 2008Q3

REPORT INFORMATION
  Report Type: 
  Country: None (occurrence: None)
  Receive Date: 20080905
  Receipt Date: 20080827
  Transmission Date: 20090109
  Serious: Yes (Hospitalization)
  Sender: FDA-Public Use
  Company Number: 6045270

PATIENT
  Age: 92 Year
  Sex: Female

DRUGS (10)
  1. DETENSIEL                      (BISOPROLOL FUMARATE) [Suspect]
     Indication: DRUG USE FOR UNKNOWN INDICATION
     Dosage: (0.75 DOSAGE FORMS, 1 D) ORAL
     Route: 048
  2. LASIX [Suspect]
     Indication: CARDIAC FAILURE
     Dosage: (1 DOSAGE FORMS, 1 D) ORAL
     Route: 048
  3. IXEL                          (MILNACIPRAN) [Suspect]
     Indication: MAJOR DEPRESSION
     Dosage: 2 DOSAGE FORMS (1 DOSAGE FORMS, 2 IN 1 D) ORAL
     Route: 048
     Dates: end: 20080727
  4. PRAXILENE  (NAFTIDROFURYL OXALATE) [Concomitant]
  5. ASPIRIN [Concomitant]
  6. XANAX [Concomitant]
  7. ZOLPIDEM TARTRATE [Concomitant]
  8. INIPOMP                       (PANTOPRAZOLE) [Concomitant]
  9. IDARAC [Concomitant]
  10. LYRICA [Concomitant]

REACTIONS (10)
  - ARTHRALGIA [None]
  - BEDRIDDEN [None]
  - BLOOD PRESSURE FLUCTUATION [None]
  - DRUG INTERACTION [None]
  - FALL [None]
  - FEMORAL NECK FRACTURE [None]
  - HAEMATOMA [None]
  - HYPOTENSION [None]
  - MOBILITY DECREASED [None]
  - OXYGEN SATURATION DECREASED [None]
